FAERS Safety Report 25952845 (Version 1)
Quarter: 2025Q4

REPORT INFORMATION
  Report Type: Spontaneous
  Country: US (occurrence: US)
  Receive Date: 20251023
  Receipt Date: 20251023
  Transmission Date: 20260118
  Serious: No
  Sender: Day One Biopharmaceuticals
  Company Number: US-Day One Biopharmaceuticals Inc.-2025US001540

PATIENT

DRUGS (1)
  1. OJEMDA [Suspect]
     Active Substance: TOVORAFENIB
     Indication: Product used for unknown indication
     Dosage: UNKNOWN
     Route: 065
     Dates: start: 202501

REACTIONS (6)
  - Flushing [Unknown]
  - Skin hypopigmentation [Unknown]
  - Hair colour changes [Unknown]
  - Dry skin [Unknown]
  - Rash papular [Unknown]
  - Influenza [Unknown]

NARRATIVE: CASE EVENT DATE: 20250101
